FAERS Safety Report 10931082 (Version 1)
Quarter: 2015Q1

REPORT INFORMATION
  Report Type: Spontaneous
  Country: PH (occurrence: None)
  Receive Date: 20150317
  Receipt Date: 20150317
  Transmission Date: 20150721
  Serious: Yes (Hospitalization)
  Sender: FDA-Public Use
  Company Number: FK201501155

PATIENT
  Age: 27 Year
  Sex: Female

DRUGS (2)
  1. CALCIUM WITH VITAMIN D (CALCIUM CARBONATE W/VITAMIN D NOS) [Concomitant]
  2. METHYLPREDNISOLONE (MANUFACTURER UNKNOWN) (METHYLPREDNISOLONE SODIUM SUCCINATE) (METHYLPREDNISOLONE SODIUM SUCCINATE) [Suspect]
     Active Substance: METHYLPREDNISOLONE
     Indication: SYSTEMIC LUPUS ERYTHEMATOSUS
     Dosage: (NOT OTHERWISE SPECIFIED)
     Route: 042

REACTIONS (4)
  - Joint tuberculosis [None]
  - Alanine aminotransferase increased [None]
  - Osteonecrosis [None]
  - Aspartate aminotransferase increased [None]
